FAERS Safety Report 13299820 (Version 6)
Quarter: 2019Q4

REPORT INFORMATION
  Report Type: Report from Study
  Country: US (occurrence: US)
  Receive Date: 20170306
  Receipt Date: 20191007
  Transmission Date: 20200122
  Serious: Yes (Hospitalization, Other)
  Sender: FDA-Public Use
  Company Number: US-ACTELION-A-NJ2017-150572

PATIENT
  Age: 51 Year
  Sex: Female

DRUGS (10)
  1. UROCIT [Concomitant]
  2. OPSUMIT [Suspect]
     Active Substance: MACITENTAN
     Indication: PULMONARY ARTERIAL HYPERTENSION
     Dosage: 10 MG, QD
     Route: 048
     Dates: start: 20160317
  3. ZOLPIDEM [Concomitant]
     Active Substance: ZOLPIDEM TARTRATE
  4. ACTEMRA [Concomitant]
     Active Substance: TOCILIZUMAB
  5. CALCIUM [Concomitant]
     Active Substance: CALCIUM
  6. ADVAIR HFA [Concomitant]
     Active Substance: FLUTICASONE PROPIONATE\SALMETEROL XINAFOATE
  7. ADEMPAS [Concomitant]
     Active Substance: RIOCIGUAT
  8. SODIUM BICARBONATE. [Concomitant]
     Active Substance: SODIUM BICARBONATE
  9. FOLIC ACID. [Concomitant]
     Active Substance: FOLIC ACID
  10. FUROSEMIDE. [Concomitant]
     Active Substance: FUROSEMIDE

REACTIONS (6)
  - Chemotherapy [Unknown]
  - Nausea [Unknown]
  - Dyspnoea [Unknown]
  - Gastroenteritis viral [Recovered/Resolved]
  - Dysphagia [Unknown]
  - Product dose omission [Recovered/Resolved]

NARRATIVE: CASE EVENT DATE: 201902
